FAERS Safety Report 6266402-6 (Version None)
Quarter: 2009Q3

REPORT INFORMATION
  Report Type: 
  Country: None (occurrence: None)
  Receive Date: 20090713
  Receipt Date: 20090703
  Transmission Date: 20100115
  Serious: Yes (Hospitalization)
  Sender: FDA-Public Use
  Company Number: HU-ABBOTT-09P-076-0565663-00

PATIENT
  Sex: Female
  Weight: 76 kg

DRUGS (9)
  1. HUMIRA [Suspect]
     Indication: RHEUMATOID ARTHRITIS
     Route: 058
     Dates: start: 20081014, end: 20090324
  2. METHOTREXATE SODIUM [Suspect]
     Indication: RHEUMATOID ARTHRITIS
     Route: 048
     Dates: start: 20081015, end: 20090318
  3. AFLAMIN [Concomitant]
     Indication: RHEUMATOID ARTHRITIS
     Dates: start: 20080815
  4. APOLAR [Concomitant]
     Indication: OSTEOPOROSIS
     Dosage: WEEKLY
     Dates: start: 20080815
  5. VITAMIN D3 [Concomitant]
     Indication: OSTEOPOROSIS
     Dates: start: 20080815
  6. CITRO-CALCIUM [Concomitant]
     Indication: OSTEOPOROSIS
     Dates: start: 20080815
  7. ASCORBIC ACID [Concomitant]
     Indication: RHEUMATOID ARTHRITIS
     Dates: start: 20080815, end: 20090424
  8. HUMA-FOLACID [Concomitant]
     Indication: RHEUMATOID ARTHRITIS
     Dates: start: 20081018, end: 20090424
  9. IBUPROFEN [Concomitant]
     Indication: RHEUMATOID ARTHRITIS
     Dates: start: 20080601, end: 20080815

REACTIONS (1)
  - PNEUMONITIS [None]
